FAERS Safety Report 8896364 (Version 1)
Quarter: 2012Q4

REPORT INFORMATION
  Report Type: Spontaneous
  Country: US (occurrence: None)
  Receive Date: 20121107
  Receipt Date: 20121107
  Transmission Date: 20130627
  Serious: Yes (Life-Threatening)
  Sender: FDA-Public Use
  Company Number: None

PATIENT
  Age: 23 Year
  Sex: Male
  Weight: 77.11 kg

DRUGS (2)
  1. SAPHRIS [Suspect]
     Indication: DEPRESSION
     Dosage: 5mgs bedtime sl
     Route: 060
     Dates: start: 20120904, end: 20121026
  2. SAPHRIS [Suspect]
     Indication: ANXIETY
     Dosage: 5mgs bedtime sl
     Route: 060
     Dates: start: 20120904, end: 20121026

REACTIONS (8)
  - Feeling drunk [None]
  - Muscle fatigue [None]
  - Loss of consciousness [None]
  - Fall [None]
  - Scratch [None]
  - Contusion [None]
  - Vomiting [None]
  - Dizziness [None]
